FAERS Safety Report 10758438 (Version 1)
Quarter: 2015Q1

REPORT INFORMATION
  Report Type: Spontaneous
  Country: BR (occurrence: BR)
  Receive Date: 20150203
  Receipt Date: 20150203
  Transmission Date: 20150721
  Serious: Yes (Other)
  Sender: FDA-Public Use
  Company Number: BR-SA-2015SA010079

PATIENT
  Age: 45 Year
  Sex: Female
  Weight: 57 kg

DRUGS (4)
  1. LANTUS [Suspect]
     Active Substance: INSULIN GLARGINE
     Indication: TYPE 1 DIABETES MELLITUS
     Dosage: DOSE:22 UNIT(S)
     Route: 065
     Dates: start: 2006
  2. AUTOPEN 24 [Concomitant]
     Active Substance: DEVICE
     Indication: DEVICE THERAPY
     Dosage: STARTED SINCE APPROX 6 YEARS
     Dates: start: 2008
  3. FLUOXETINE [Concomitant]
     Active Substance: FLUOXETINE\FLUOXETINE HYDROCHLORIDE
     Indication: DEPRESSION
     Dates: start: 201410
  4. TOPIRAMATE. [Concomitant]
     Active Substance: TOPIRAMATE
     Indication: WEIGHT CONTROL
     Dosage: INDICATION: HELP ON DIET
     Dates: start: 201410

REACTIONS (8)
  - Visual acuity reduced [Unknown]
  - Sensory loss [Not Recovered/Not Resolved]
  - Paraesthesia [Not Recovered/Not Resolved]
  - Retinopathy [Not Recovered/Not Resolved]
  - Vision blurred [Unknown]
  - Neuropathy peripheral [Not Recovered/Not Resolved]
  - Drug administration error [Unknown]
  - Macular oedema [Unknown]

NARRATIVE: CASE EVENT DATE: 2006
